FAERS Safety Report 13656669 (Version 1)
Quarter: 2017Q2

REPORT INFORMATION
  Report Type: Spontaneous
  Country: US (occurrence: US)
  Receive Date: 20170615
  Receipt Date: 20170615
  Transmission Date: 20170830
  Serious: Yes (Hospitalization, Other)
  Sender: FDA-Public Use
  Company Number: US-APOPHARMA USA, INC.-2017AP013024

PATIENT
  Age: 66 Year

DRUGS (5)
  1. ALKERAN [Suspect]
     Active Substance: MELPHALAN
     Indication: PLASMA CELL MYELOMA
     Dosage: 200 MG/M2, SINGLE
     Route: 042
     Dates: start: 20160111, end: 20160111
  2. REVLIMID [Concomitant]
     Active Substance: LENALIDOMIDE
     Indication: PLASMA CELL MYELOMA
     Dosage: UNK, UNKNOWN
     Route: 048
     Dates: start: 20150720, end: 20151209
  3. VELCADE [Concomitant]
     Active Substance: BORTEZOMIB
     Indication: PLASMA CELL MYELOMA
     Dosage: UNK, UNKNOWN
     Route: 058
     Dates: start: 20150720, end: 20151209
  4. REVLIMID [Concomitant]
     Active Substance: LENALIDOMIDE
     Dosage: 15 MG, OTHER
     Route: 048
     Dates: start: 20151008, end: 20151209
  5. DEXAMETHASONE. [Concomitant]
     Active Substance: DEXAMETHASONE
     Indication: PLASMA CELL MYELOMA
     Dosage: 40 MG, Q.WK.
     Route: 048
     Dates: start: 20150720, end: 20151209

REACTIONS (4)
  - Weight decreased [Recovered/Resolved]
  - Decreased appetite [Recovered/Resolved]
  - Stem cell transplant [Recovered/Resolved]
  - Gastrointestinal tube insertion [None]

NARRATIVE: CASE EVENT DATE: 20160113
